FAERS Safety Report 9940324 (Version 1)
Quarter: 2014Q1

REPORT INFORMATION
  Report Type: Report from Study
  Country: US (occurrence: US)
  Receive Date: 20140303
  Receipt Date: 20140303
  Transmission Date: 20141002
  Serious: No
  Sender: FDA-Public Use
  Company Number: US-ABBVIE-13P-163-1035038-00

PATIENT
  Age: 57 Year
  Sex: Male

DRUGS (6)
  1. HUMIRA [Suspect]
     Indication: CROHN^S DISEASE
     Route: 058
     Dates: start: 20121204
  2. HYDROCODONE [Concomitant]
     Indication: PAIN
     Dosage: 10-325MG
  3. ATENOLOL [Concomitant]
     Indication: BLOOD PRESSURE
  4. COZAAR [Concomitant]
     Indication: BLOOD PRESSURE
  5. SIMVASTATIN [Concomitant]
     Indication: BLOOD CHOLESTEROL
  6. XANAX [Concomitant]
     Indication: ANXIETY
     Dosage: 1-2/DAY

REACTIONS (4)
  - Wrong technique in drug usage process [Unknown]
  - Injection site pain [Recovered/Resolved]
  - Incorrect dose administered [Unknown]
  - Injection site pain [Unknown]
